FAERS Safety Report 9991890 (Version 2)
Quarter: 2014Q3

REPORT INFORMATION
  Report Type: Spontaneous
  Country: US (occurrence: US)
  Receive Date: 20140310
  Receipt Date: 20140911
  Transmission Date: 20150326
  Serious: Yes (Hospitalization)
  Sender: FDA-Public Use
  Company Number: US-BAYER-2014-035771

PATIENT
  Age: 30 Year
  Sex: Female
  Weight: 83.9 kg

DRUGS (8)
  1. BEYAZ [Suspect]
     Active Substance: DROSPIRENONE\ETHINYL ESTRADIOL\LEVOMEFOLATE CALCIUM
     Indication: PREMENSTRUAL SYNDROME
     Dosage: UNK
     Dates: start: 201109, end: 201204
  2. BEYAZ [Suspect]
     Active Substance: DROSPIRENONE\ETHINYL ESTRADIOL\LEVOMEFOLATE CALCIUM
     Indication: PREMENSTRUAL SYNDROME
     Dosage: UNK
     Dates: start: 201109, end: 201203
  3. VICODIN [Concomitant]
     Active Substance: ACETAMINOPHEN\HYDROCODONE BITARTRATE
  4. IBUPROFEN [IBUPROFEN] [Concomitant]
     Active Substance: IBUPROFEN
     Dosage: UNK UNK, PRN
  5. PAMPRIN [Concomitant]
     Active Substance: IBUPROFEN
  6. HYDROCODONE BIT/APAP [Concomitant]
     Active Substance: ACETAMINOPHEN\HYDROCODONE BITARTRATE
     Dosage: 7.5 TO 750 MG EVERY 4 TO 6 HOURS.
     Route: 048
     Dates: start: 20090105, end: 20120430
  7. SERTRALINE [Concomitant]
     Active Substance: SERTRALINE HYDROCHLORIDE
     Indication: DYSTHYMIC DISORDER
     Dosage: 50 MG, EVERY DAY
     Route: 048
     Dates: start: 20120308, end: 20130702
  8. MORPHINE [Concomitant]
     Active Substance: MORPHINE
     Indication: PLEURITIC PAIN

REACTIONS (7)
  - General physical health deterioration [Recovered/Resolved]
  - Injury [Recovered/Resolved]
  - Pulmonary embolism [Recovered/Resolved]
  - Abdominal pain [None]
  - Pulmonary infarction [Recovering/Resolving]
  - Chest pain [Recovered/Resolved]
  - Dyspnoea [Recovered/Resolved]

NARRATIVE: CASE EVENT DATE: 201204
